FAERS Safety Report 8924857 (Version 3)
Quarter: 2012Q4

REPORT INFORMATION
  Report Type: 
  Country: JP (occurrence: JP)
  Receive Date: 20121126
  Receipt Date: 20121213
  Transmission Date: 20130627
  Serious: Yes (Hospitalization)
  Sender: FDA-Public Use
  Company Number: JP-ABBOTT-12P-087-1002573-00

PATIENT
  Age: 47 Year
  Sex: Female

DRUGS (5)
  1. KLARICID [Suspect]
     Indication: ATYPICAL MYCOBACTERIAL INFECTION
     Dosage: In the morning and evening
     Route: 048
     Dates: start: 20121018, end: 20121030
  2. KLARICID [Suspect]
     Route: 048
     Dates: start: 20121031, end: 20121106
  3. KLARICID [Suspect]
     Route: 048
     Dates: start: 20121106
  4. RIFAMPICIN [Concomitant]
     Indication: ATYPICAL MYCOBACTERIAL INFECTION
     Dosage: In the morning
     Route: 048
     Dates: start: 20121018
  5. ETHAMBUTOL HYDROCHLORIDE [Concomitant]
     Indication: ATYPICAL MYCOBACTERIAL INFECTION
     Dosage: In the morning
     Route: 048
     Dates: start: 20121018

REACTIONS (3)
  - Fall [Unknown]
  - Hypoglycaemia [Not Recovered/Not Resolved]
  - Dizziness [Unknown]
